FAERS Safety Report 26133829 (Version 1)
Quarter: 2025Q4

REPORT INFORMATION
  Report Type: Spontaneous
  Country: US (occurrence: US)
  Receive Date: 20251209
  Receipt Date: 20251209
  Transmission Date: 20260118
  Serious: No
  Sender: ELI LILLY AND COMPANY
  Company Number: US-ELI_LILLY_AND_COMPANY-US202512007884

PATIENT
  Age: 75 Year
  Sex: Female

DRUGS (6)
  1. KISUNLA [Suspect]
     Active Substance: DONANEMAB-AZBT
     Indication: Dementia Alzheimer^s type
     Dosage: UNK UNK, UNKNOWN, 1ST INFUSION
     Route: 065
     Dates: start: 20250804
  2. KISUNLA [Suspect]
     Active Substance: DONANEMAB-AZBT
     Dosage: UNK UNK, UNKNOWN, 2ND INFUSION
     Route: 065
  3. KISUNLA [Suspect]
     Active Substance: DONANEMAB-AZBT
     Dosage: UNK UNK, UNKNOWN, 3RD INFUSION
     Route: 065
  4. KISUNLA [Suspect]
     Active Substance: DONANEMAB-AZBT
     Dosage: 1400 MG, UNKNOWN, 4TH INFUSION
     Route: 065
     Dates: start: 20251029
  5. CITALOPRAM [Concomitant]
     Active Substance: CITALOPRAM
     Indication: Product used for unknown indication
  6. LISINOPRIL [Concomitant]
     Active Substance: LISINOPRIL
     Indication: Blood pressure measurement

REACTIONS (1)
  - Amyloid related imaging abnormality-oedema/effusion [Not Recovered/Not Resolved]

NARRATIVE: CASE EVENT DATE: 20251120
